FAERS Safety Report 5450421-3 (Version None)
Quarter: 2007Q3

REPORT INFORMATION
  Report Type: 
  Country: None (occurrence: None)
  Receive Date: 20070912
  Receipt Date: 20070831
  Transmission Date: 20080115
  Serious: Yes (Hospitalization)
  Sender: FDA-Public Use
  Company Number: US-GENENTECH-247070

PATIENT
  Age: 66 Year
  Sex: Male

DRUGS (19)
  1. BEVACIZUMAB [Suspect]
     Indication: COLON CANCER
     Dosage: 695 MG, Q2W
     Route: 042
     Dates: start: 20051229
  2. EVEROLIMUS [Suspect]
     Indication: COLON CANCER
     Dosage: 10 MG, QD
     Route: 048
     Dates: start: 20051229
  3. TOPROL-XL [Concomitant]
     Indication: DRUG USE FOR UNKNOWN INDICATION
     Dosage: 25 MG, QD
  4. COUMADIN [Concomitant]
     Indication: DRUG USE FOR UNKNOWN INDICATION
     Dosage: 1 MG, QD
  5. ZETIA [Concomitant]
     Indication: DRUG USE FOR UNKNOWN INDICATION
     Dosage: 10 MG, UNK
  6. NORVASC [Concomitant]
     Indication: DRUG USE FOR UNKNOWN INDICATION
     Dosage: 5 MG, QD
  7. VITAMIN B6 [Concomitant]
     Indication: DRUG USE FOR UNKNOWN INDICATION
     Dosage: 1 TABLET, BID
  8. FISH OIL [Concomitant]
     Indication: DRUG USE FOR UNKNOWN INDICATION
     Dosage: 1 TABLET, BID
  9. STOOL SOFTENER (NAME UNK) [Concomitant]
     Indication: DRUG USE FOR UNKNOWN INDICATION
     Dosage: 3 TABLET, BID
  10. HYDROCODONE [Concomitant]
     Indication: DRUG USE FOR UNKNOWN INDICATION
     Dosage: 2 TABLET, PRN
  11. COMPAZINE [Concomitant]
     Indication: DRUG USE FOR UNKNOWN INDICATION
     Dosage: 10 MG, PRN
  12. IMODIUM [Concomitant]
     Indication: DRUG USE FOR UNKNOWN INDICATION
     Dosage: 1 TABLET, PRN
  13. TYLENOL (CAPLET) [Concomitant]
     Indication: DRUG USE FOR UNKNOWN INDICATION
     Dosage: 650 MG, PRN
  14. EX-LAX [Concomitant]
     Indication: DRUG USE FOR UNKNOWN INDICATION
     Dosage: 2 TABLET, QD
  15. HURRICAINE SPRAY [Concomitant]
     Indication: DRUG USE FOR UNKNOWN INDICATION
     Dosage: UNK, PRN
  16. MAGIC MOUTHWASH (BENADRYL, CARAFATE, XYLOCAIN [Concomitant]
     Indication: DRUG USE FOR UNKNOWN INDICATION
     Dosage: 5 ML, TID
  17. NYSTATIN [Concomitant]
     Indication: DRUG USE FOR UNKNOWN INDICATION
     Dosage: 4 ML, QID
  18. DECADRON [Concomitant]
     Indication: DRUG USE FOR UNKNOWN INDICATION
     Dosage: 2 MG, QD
  19. NIFEREX [Concomitant]
     Indication: DRUG USE FOR UNKNOWN INDICATION
     Dosage: 1 TABLET, QD

REACTIONS (3)
  - DYSPNOEA [None]
  - HYPOXIA [None]
  - MYOCARDIAL ISCHAEMIA [None]
